FAERS Safety Report 6266227-1 (Version None)
Quarter: 2009Q3

REPORT INFORMATION
  Report Type: 
  Country: None (occurrence: None)
  Receive Date: 20090713
  Receipt Date: 20090701
  Transmission Date: 20100115
  Serious: Yes (Hospitalization)
  Sender: FDA-Public Use
  Company Number: IT-PFIZER INC-2009235207

PATIENT

DRUGS (1)
  1. EPIRUBICIN HCL [Suspect]

REACTIONS (2)
  - ANAL SPHINCTER ATONY [None]
  - LOSS OF CONSCIOUSNESS [None]
